FAERS Safety Report 17674360 (Version 1)
Quarter: 2020Q2

REPORT INFORMATION
  Report Type: Spontaneous
  Country: GB (occurrence: GB)
  Receive Date: 20200416
  Receipt Date: 20200416
  Transmission Date: 20200714
  Serious: Yes (Other)
  Sender: FDA-Public Use
  Company Number: GB-UNICHEM PHARMACEUTICALS (USA) INC-UCM202004-000448

PATIENT
  Age: 73 Year
  Sex: Female

DRUGS (2)
  1. RIZATRIPTAN. [Suspect]
     Active Substance: RIZATRIPTAN
     Indication: MIGRAINE
  2. EPSOM SALT [Suspect]
     Active Substance: MAGNESIUM SULFATE
     Indication: CONSTIPATION

REACTIONS (3)
  - Gas poisoning [Recovered/Resolved]
  - Oxygen saturation decreased [Recovered/Resolved]
  - Cyanosis central [Recovered/Resolved]
